FAERS Safety Report 4348665-7 (Version None)
Quarter: 2004Q2

REPORT INFORMATION
  Report Type: 
  Country: None (occurrence: None)
  Receive Date: 20040423
  Receipt Date: 20040413
  Transmission Date: 20050107
  Serious: Yes (Hospitalization)
  Sender: FDA-Public Use
  Company Number: DE-JNJFOC-20040300097

PATIENT
  Age: 53 Year
  Sex: Male

DRUGS (6)
  1. INFLIXIMAB, RECOMBINANT- BLINDED (INFLIXIMAB, RECOMBINANT) LYOPHILIZED [Suspect]
     Indication: ANKYLOSING SPONDYLITIS
     Dosage: INTRAVENOUS
     Route: 042
     Dates: start: 20030217
  2. PLACEBO (PLACEBO) LYOPHILIZED POWDER [Suspect]
     Indication: ANKYLOSING SPONDYLITIS
     Dosage: INTRAVENOUS
     Route: 042
     Dates: start: 20030217
  3. VIOXX [Concomitant]
  4. OMEPRAZOLE [Concomitant]
  5. VIGANTOLETTEN (COLECALCIFEROL) [Concomitant]
  6. CALCIUM [Concomitant]

REACTIONS (4)
  - ARTHRALGIA [None]
  - LUPUS-LIKE SYNDROME [None]
  - PAIN [None]
  - POLYARTHRITIS [None]
